FAERS Safety Report 9241873 (Version 1)
Quarter: 2013Q2

REPORT INFORMATION
  Report Type: Spontaneous
  Country: US (occurrence: US)
  Receive Date: 20130419
  Receipt Date: 20130419
  Transmission Date: 20140414
  Serious: No
  Sender: FDA-Public Use
  Company Number: US-009507513-1304USA008822

PATIENT
  Sex: Female

DRUGS (3)
  1. DULERA [Suspect]
     Indication: ASTHMA
     Route: 055
  2. CLARITIN [Concomitant]
  3. MUCINEX [Concomitant]

REACTIONS (3)
  - Scratch [Unknown]
  - Skin haemorrhage [Unknown]
  - Hypersensitivity [Unknown]
